FAERS Safety Report 6035929-4 (Version None)
Quarter: 2009Q1

REPORT INFORMATION
  Report Type: 
  Country: None (occurrence: None)
  Receive Date: 20090113
  Receipt Date: 20090110
  Transmission Date: 20090719
  Serious: Yes (Life-Threatening)
  Sender: FDA-Public Use
  Company Number: B0548325A

PATIENT
  Age: 4 Year
  Sex: Male
  Weight: 18 kg

DRUGS (3)
  1. AUGMENTIN '125' [Suspect]
     Dosage: 7ML TWICE PER DAY
     Route: 048
     Dates: start: 20081110, end: 20081116
  2. ACETAMINOPHEN [Concomitant]
     Dosage: 30ML PER DAY
     Route: 048
     Dates: start: 20081110, end: 20081112
  3. UNKNOWN DRUG [Concomitant]
     Dates: start: 20081111, end: 20081116

REACTIONS (1)
  - GRAND MAL CONVULSION [None]
